FAERS Safety Report 18648613 (Version 2)
Quarter: 2021Q1

REPORT INFORMATION
  Report Type: Spontaneous
  Country: CN (occurrence: CN)
  Receive Date: 20201222
  Receipt Date: 20210105
  Transmission Date: 20210419
  Serious: Yes (Life-Threatening, Hospitalization)
  Sender: FDA-Public Use
  Company Number: CN-COVIS PHARMA B.V.-2020COV00597

PATIENT
  Age: 63 Year
  Sex: Male
  Weight: 70 kg

DRUGS (4)
  1. RILUTEK [Suspect]
     Active Substance: RILUZOLE
     Indication: MOTOR NEURONE DISEASE
  2. COENZYME Q10 [Concomitant]
     Active Substance: DIETARY SUPPLEMENT\UBIDECARENONE
  3. RILUTEK [Suspect]
     Active Substance: RILUZOLE
     Indication: AMYOTROPHIC LATERAL SCLEROSIS
     Dosage: 1 DF, 2X/DAY
     Dates: start: 2010, end: 20201201
  4. VITAMIN E [Concomitant]
     Active Substance: .ALPHA.-TOCOPHEROL

REACTIONS (3)
  - Hospitalisation [Not Recovered/Not Resolved]
  - Dyspnoea [Recovering/Resolving]
  - Product availability issue [Unknown]

NARRATIVE: CASE EVENT DATE: 20130206
